FAERS Safety Report 4930433-6 (Version None)
Quarter: 2006Q1

REPORT INFORMATION
  Report Type: 
  Country: None (occurrence: None)
  Receive Date: 20060118
  Receipt Date: 20050815
  Transmission Date: 20060701
  Serious: No
  Sender: FDA-Public Use
  Company Number: 2005001673

PATIENT
  Age: 57 Year
  Sex: Male

DRUGS (2)
  1. TARCEVA [Suspect]
     Dosage: 150MG (QD), ORAL
     Route: 048
     Dates: start: 20050810, end: 20050814
  2. WARFARIN SODIUM [Concomitant]

REACTIONS (2)
  - HAEMOPTYSIS [None]
  - RASH [None]
